FAERS Safety Report 12472970 (Version 3)
Quarter: 2016Q3

REPORT INFORMATION
  Report Type: Spontaneous
  Country: US (occurrence: US)
  Receive Date: 20160616
  Receipt Date: 20160812
  Transmission Date: 20161109
  Serious: Yes (Hospitalization, Other)
  Sender: FDA-Public Use
  Company Number: US-BAYER-2016-113288

PATIENT
  Age: 42 Year
  Sex: Female
  Weight: 63.49 kg

DRUGS (14)
  1. ATIVAN [Concomitant]
     Active Substance: LORAZEPAM
     Dosage: 0.5 MG, PRN, 6 HR
     Route: 048
  2. METFORMIN [Concomitant]
     Active Substance: METFORMIN HYDROCHLORIDE
  3. LEVSIN [Concomitant]
     Active Substance: HYOSCYAMINE SULFATE
     Dosage: 0.125 MG, TID, PRN
  4. ASA [Concomitant]
     Active Substance: ASPIRIN
  5. ANUSOL-HC [HYDROCORTISONE ACETATE] [Concomitant]
     Dosage: UNK UNK, QID, PRN
     Route: 061
  6. GLUCOTROL [Concomitant]
     Active Substance: GLIPIZIDE
     Dosage: 5 MG, BID
     Route: 048
  7. COMPAZINE [Concomitant]
     Active Substance: PROCHLORPERAZINE MALEATE
     Dosage: 10 MG, UNK
     Route: 048
     Dates: end: 20160410
  8. BENTYL [Concomitant]
     Active Substance: DICYCLOMINE HYDROCHLORIDE
     Dosage: 10 MG, BID, PRN
  9. BENADRYL [Concomitant]
     Active Substance: DIPHENHYDRAMINE HYDROCHLORIDE
     Dosage: 25 MG, PRN (Q8HR)
  10. LACTULOSE. [Concomitant]
     Active Substance: LACTULOSE
  11. NORVASC [Concomitant]
     Active Substance: AMLODIPINE BESYLATE
     Dosage: 10 MG, QD
     Route: 048
  12. KAOCHLOR [Concomitant]
     Dosage: 20 MEQ, QD
     Route: 048
  13. STIVARGA [Suspect]
     Active Substance: REGORAFENIB
     Indication: RECTAL CANCER METASTATIC
     Dosage: 120 MG, QD, 21 DAYS OF 28 DAYS
     Route: 048
     Dates: start: 20160330, end: 20160411
  14. COLACE [Concomitant]
     Active Substance: DOCUSATE SODIUM
     Dosage: 100 MG, PRN

REACTIONS (14)
  - Urinary tract infection [None]
  - Facial paralysis [Recovered/Resolved]
  - Neurological symptom [Recovering/Resolving]
  - Blood glucose increased [None]
  - Nasal congestion [None]
  - Sepsis [None]
  - Pyrexia [None]
  - Speech disorder [Recovered/Resolved]
  - Mucosal inflammation [None]
  - Hypersensitivity [None]
  - Mental status changes [Recovering/Resolving]
  - Mobility decreased [Recovered/Resolved]
  - Cerebrovascular accident [Recovered/Resolved]
  - Blood pressure increased [None]

NARRATIVE: CASE EVENT DATE: 20160408
